FAERS Safety Report 9072527 (Version 1)
Quarter: 2013Q1

REPORT INFORMATION
  Report Type: Spontaneous
  Country: JP (occurrence: JP)
  Receive Date: 20130207
  Receipt Date: 20130321
  Transmission Date: 20140127
  Serious: Yes (Other)
  Sender: FDA-Public Use
  Company Number: JP-SANOFI-AVENTIS-2013SA008681

PATIENT
  Age: 86 Year
  Sex: Female
  Weight: 50 kg

DRUGS (11)
  1. CLEXANE [Suspect]
     Indication: THROMBOSIS PROPHYLAXIS
     Dosage: DOSE:2000 UNIT(S)
     Route: 058
     Dates: start: 20110402, end: 20110407
  2. ACETYLSALICYLIC ACID/ALUMINIUM GLYCINATE/MAGNESIUM CARBONATE [Suspect]
     Indication: PRODUCT USED FOR UNKNOWN INDICATION
     Route: 048
     Dates: start: 20110330, end: 20110407
  3. ETODOLAC [Suspect]
     Indication: POSTOPERATIVE ANALGESIA
     Route: 048
     Dates: start: 20110402, end: 20110406
  4. SENNARIDE [Concomitant]
     Route: 048
     Dates: start: 20110330, end: 20110521
  5. BROTIZOLAM [Concomitant]
     Route: 048
     Dates: start: 20110330, end: 20110521
  6. MECOBALAMIN [Concomitant]
     Route: 048
     Dates: start: 20110330, end: 20110521
  7. OPALMON [Concomitant]
     Route: 048
     Dates: start: 20110330, end: 20110521
  8. NICERGOLINE [Concomitant]
     Route: 048
     Dates: start: 20110330, end: 20110521
  9. AMLODIPINE [Concomitant]
     Route: 048
     Dates: start: 20110330, end: 20110521
  10. DIOVANE [Concomitant]
     Route: 048
     Dates: start: 20110330, end: 20110521
  11. MARCAIN [Concomitant]
     Indication: ANALGESIC THERAPY
     Dates: start: 20110401

REACTIONS (7)
  - Duodenal ulcer haemorrhage [Recovered/Resolved]
  - Melaena [Recovered/Resolved]
  - Anaemia [Recovered/Resolved]
  - Pallor [Recovered/Resolved]
  - Loss of consciousness [Recovered/Resolved]
  - Diverticulum [None]
  - Hyperhidrosis [None]
